FAERS Safety Report 4387466-0 (Version None)
Quarter: 2004Q2

REPORT INFORMATION
  Report Type: 
  Country: None (occurrence: None)
  Receive Date: 20040630
  Receipt Date: 20040407
  Transmission Date: 20050107
  Serious: No
  Sender: FDA-Public Use
  Company Number: US-BRISTOL-MYERS SQUIBB COMPANY-12555413

PATIENT
  Age: 35 Year
  Sex: Female

DRUGS (5)
  1. REYATAZ [Suspect]
     Indication: HIV INFECTION
     Route: 048
     Dates: start: 20040204, end: 20040413
  2. CYPROHEPTADINE HCL [Suspect]
     Indication: ANOREXIA
     Route: 048
  3. RITONAVIR [Concomitant]
     Dates: start: 20040204, end: 20040413
  4. VIREAD [Concomitant]
     Dates: start: 20040204, end: 20040413
  5. EMTRIVA [Concomitant]
     Dates: start: 20040204, end: 20040413

REACTIONS (4)
  - DIZZINESS [None]
  - SINUS BRADYCARDIA [None]
  - VISION BLURRED [None]
  - VOMITING [None]
